FAERS Safety Report 10154632 (Version 2)
Quarter: 2014Q2

REPORT INFORMATION
  Report Type: Spontaneous
  Country: US (occurrence: US)
  Receive Date: 20140506
  Receipt Date: 20140611
  Transmission Date: 20141212
  Serious: No
  Sender: FDA-Public Use
  Company Number: US-PFIZER INC-2014120892

PATIENT
  Sex: Female

DRUGS (2)
  1. ESTRADIOL [Suspect]
     Dosage: 0.5 MG, UNK
  2. PROGESTERONE [Suspect]
     Dosage: 200 MG, UNK

REACTIONS (9)
  - Dizziness [Unknown]
  - Poor peripheral circulation [Unknown]
  - Pain [Unknown]
  - Paraesthesia [Unknown]
  - Malaise [Unknown]
  - Feeling cold [Unknown]
  - Alopecia [Unknown]
  - Therapeutic response changed [Unknown]
  - Blood glucose increased [Unknown]
